FAERS Safety Report 18439172 (Version 1)
Quarter: 2020Q4

REPORT INFORMATION
  Report Type: Report from Study
  Country: US (occurrence: US)
  Receive Date: 20201028
  Receipt Date: 20201028
  Transmission Date: 20210114
  Serious: Yes (Hospitalization)
  Sender: FDA-Public Use
  Company Number: US-SHIRE-US202027002

PATIENT
  Age: 61 Year
  Sex: Female
  Weight: 87.08 kg

DRUGS (18)
  1. OXYBUTYNIN CHLORIDE. [Concomitant]
     Active Substance: OXYBUTYNIN CHLORIDE
     Indication: PRODUCT USED FOR UNKNOWN INDICATION
  2. VITAMIN B12 [Concomitant]
     Active Substance: CYANOCOBALAMIN
     Indication: PRODUCT USED FOR UNKNOWN INDICATION
  3. VITAMIN D [COLECALCIFEROL] [Concomitant]
     Active Substance: CHOLECALCIFEROL
     Indication: PRODUCT USED FOR UNKNOWN INDICATION
  4. GATTEX [Suspect]
     Active Substance: TEDUGLUTIDE\WATER
     Dosage: 4.25 MILLIGRAM, 1X/DAY:QD
     Route: 058
     Dates: start: 201909, end: 20200806
  5. GATTEX [Suspect]
     Active Substance: TEDUGLUTIDE\WATER
     Dosage: UNK
     Route: 058
  6. GATTEX [Suspect]
     Active Substance: TEDUGLUTIDE\WATER
     Indication: SHORT-BOWEL SYNDROME
     Dosage: 4.15 MILLIGRAM, 1X/DAY:QD
     Route: 058
     Dates: start: 201909
  7. GATTEX [Suspect]
     Active Substance: TEDUGLUTIDE\WATER
     Dosage: UNK
     Route: 058
  8. NP THYROID [Concomitant]
     Active Substance: LEVOTHYROXINE\LIOTHYRONINE
     Indication: PRODUCT USED FOR UNKNOWN INDICATION
  9. GATTEX [Suspect]
     Active Substance: TEDUGLUTIDE\WATER
     Dosage: UNK
     Route: 058
  10. GATTEX [Suspect]
     Active Substance: TEDUGLUTIDE\WATER
     Indication: SHORT-BOWEL SYNDROME
     Dosage: 4.15 MILLIGRAM, 1X/DAY:QD
     Route: 058
     Dates: start: 201909
  11. GATTEX [Suspect]
     Active Substance: TEDUGLUTIDE\WATER
     Dosage: UNK
     Route: 058
  12. OMEPRAZOLE. [Concomitant]
     Active Substance: OMEPRAZOLE
     Indication: PRODUCT USED FOR UNKNOWN INDICATION
  13. GATTEX [Suspect]
     Active Substance: TEDUGLUTIDE\WATER
     Dosage: 4.25 MILLIGRAM, 1X/DAY:QD
     Route: 058
     Dates: start: 201909, end: 20200806
  14. CREON [Concomitant]
     Active Substance: PANCRELIPASE AMYLASE\PANCRELIPASE LIPASE\PANCRELIPASE PROTEASE
     Indication: PRODUCT USED FOR UNKNOWN INDICATION
  15. GATTEX [Suspect]
     Active Substance: TEDUGLUTIDE\WATER
     Indication: SHORT-BOWEL SYNDROME
     Dosage: 4.15 MILLIGRAM, 1X/DAY:QD
     Route: 058
     Dates: start: 201909
  16. GATTEX [Suspect]
     Active Substance: TEDUGLUTIDE\WATER
     Indication: SHORT-BOWEL SYNDROME
     Dosage: 4.15 MILLIGRAM, 1X/DAY:QD
     Route: 058
     Dates: start: 201909
  17. GATTEX [Suspect]
     Active Substance: TEDUGLUTIDE\WATER
     Dosage: 4.25 MILLIGRAM, 1X/DAY:QD
     Route: 058
     Dates: start: 201909, end: 20200806
  18. GATTEX [Suspect]
     Active Substance: TEDUGLUTIDE\WATER
     Dosage: 4.25 MILLIGRAM, 1X/DAY:QD
     Route: 058
     Dates: start: 201909, end: 20200806

REACTIONS (7)
  - Nausea [Recovered/Resolved]
  - Vomiting [Recovered/Resolved]
  - Illness [Recovered/Resolved]
  - Inappropriate schedule of product administration [Recovered/Resolved]
  - Decreased appetite [Recovered/Resolved]
  - Urinary tract infection [Recovered/Resolved]
  - Condition aggravated [Unknown]

NARRATIVE: CASE EVENT DATE: 20200715
